FAERS Safety Report 7071325-9 (Version None)
Quarter: 2010Q4

REPORT INFORMATION
  Report Type: 
  Country: None (occurrence: None)
  Receive Date: 20101028
  Receipt Date: 20101028
  Transmission Date: 20110411
  Serious: Yes (Death)
  Sender: FDA-Public Use
  Company Number: None

PATIENT
  Sex: Male
  Weight: 74.8435 kg

DRUGS (2)
  1. GLUCOVANCE [Suspect]
     Indication: DIABETES MELLITUS
     Dosage: 45 MG 2X DAILY
     Dates: start: 20020101, end: 20090101
  2. GLUCOVANCE [Suspect]
     Indication: DIABETES MELLITUS INADEQUATE CONTROL
     Dosage: 45 MG 2X DAILY
     Dates: start: 20020101, end: 20090101

REACTIONS (1)
  - MYOCARDIAL INFARCTION [None]
